FAERS Safety Report 4955245-9 (Version None)
Quarter: 2006Q1

REPORT INFORMATION
  Report Type: 
  Country: None (occurrence: None)
  Receive Date: 20060328
  Receipt Date: 20060319
  Transmission Date: 20060701
  Serious: Yes (Hospitalization, Other)
  Sender: FDA-Public Use
  Company Number: PHEH2006US03867

PATIENT
  Age: 65 Year
  Sex: Female

DRUGS (3)
  1. CLOZARIL [Suspect]
     Dosage: UNK,UNK
  2. CLOZARIL [Suspect]
     Dosage: 300 MG, BID
     Route: 048
     Dates: start: 20060319
  3. EFFEXOR XR [Concomitant]

REACTIONS (5)
  - INTESTINAL OBSTRUCTION [None]
  - OVARIAN CANCER [None]
  - PNEUMONIA ASPIRATION [None]
  - SURGERY [None]
  - TARDIVE DYSKINESIA [None]
